FAERS Safety Report 6896697-7 (Version None)
Quarter: 2010Q3

REPORT INFORMATION
  Report Type: 
  Country: None (occurrence: None)
  Receive Date: 20100802
  Receipt Date: 20070112
  Transmission Date: 20110219
  Serious: No
  Sender: FDA-Public Use
  Company Number: US-PFIZER INC-2007001853

PATIENT
  Sex: Female
  Weight: 61.23 kg

DRUGS (7)
  1. LYRICA [Suspect]
     Indication: POST HERPETIC NEURALGIA
     Dates: start: 20070101
  2. EFFEXOR [Concomitant]
  3. SYNTHROID [Concomitant]
  4. IBANDRONATE SODIUM [Concomitant]
  5. PRILOSEC [Concomitant]
  6. TYLENOL W/ CODEINE [Concomitant]
     Indication: FIBROMYALGIA
  7. TYLENOL W/ CODEINE [Concomitant]
     Indication: POST HERPETIC NEURALGIA

REACTIONS (4)
  - DIZZINESS [None]
  - GAIT DISTURBANCE [None]
  - PAIN [None]
  - SOMNOLENCE [None]
